FAERS Safety Report 4415065-0 (Version None)
Quarter: 2004Q3

REPORT INFORMATION
  Report Type: 
  Country: None (occurrence: None)
  Receive Date: 20040729
  Receipt Date: 20040719
  Transmission Date: 20050211
  Serious: No
  Sender: FDA-Public Use
  Company Number: 2004UW13285

PATIENT
  Age: 64 Year
  Sex: Male
  Weight: 96.6162 kg

DRUGS (11)
  1. PULMICORT [Suspect]
     Indication: ASTHMA
     Dosage: 600 UG BID IH
     Route: 055
  2. PULMICORT [Suspect]
     Indication: CHRONIC OBSTRUCTIVE AIRWAYS DISEASE
     Dosage: 600 UG BID IH
     Route: 055
  3. DIOVAN [Concomitant]
  4. PREVACID [Concomitant]
  5. ADVIL MIGRAINE [Concomitant]
  6. COMBIVENT [Concomitant]
  7. ELIDEL [Concomitant]
  8. MULTI-VITAMINS [Concomitant]
  9. ALKA-SELTZER [Concomitant]
  10. ADVIL [Concomitant]
  11. FLONASE [Concomitant]

REACTIONS (1)
  - OESOPHAGEAL CANDIDIASIS [None]
